FAERS Safety Report 21597939 (Version 1)
Quarter: 2022Q4

REPORT INFORMATION
  Report Type: Report from Study
  Country: US (occurrence: US)
  Receive Date: 20221115
  Receipt Date: 20221115
  Transmission Date: 20230113
  Serious: Yes (Other)
  Sender: FDA-Public Use
  Company Number: US-ABBVIE-22K-163-4376946-00

PATIENT
  Age: 73 Year
  Sex: Female

DRUGS (1)
  1. HUMIRA [Suspect]
     Active Substance: ADALIMUMAB
     Indication: Crohn^s disease
     Route: 058

REACTIONS (7)
  - Central venous catheterisation [Not Recovered/Not Resolved]
  - Haemorrhage [Not Recovered/Not Resolved]
  - Feeling abnormal [Recovered/Resolved]
  - Arthritis [Unknown]
  - Ocular cyst [Not Recovered/Not Resolved]
  - Complication associated with device [Unknown]
  - Vasodilatation [Unknown]

NARRATIVE: CASE EVENT DATE: 20221001
